FAERS Safety Report 10016754 (Version 9)
Quarter: 2020Q3

REPORT INFORMATION
  Report Type: Report from Study
  Country: PL (occurrence: PL)
  Receive Date: 20140318
  Receipt Date: 20140711
  Transmission Date: 20201104
  Serious: Yes (Hospitalization, Disabling, Other)
  Sender: FDA-Public Use
  Company Number: PHHY2014PL028976

PATIENT
  Age: 55 Year
  Sex: Male
  Weight: 53 kg

DRUGS (34)
  1. OXALIPLATIN. [Suspect]
     Active Substance: OXALIPLATIN
     Dosage: 140 MG, BIW
     Route: 042
     Dates: start: 20140212, end: 20140212
  2. FOLINIC ACID [Suspect]
     Active Substance: LEUCOVORIN
     Indication: GASTROOESOPHAGEAL CANCER
     Dosage: 650 MG, BIW
     Route: 042
     Dates: start: 20131108, end: 20131108
  3. ONARTUZUMAB. [Suspect]
     Active Substance: ONARTUZUMAB
     Dosage: 570 MG, BIW
     Route: 042
     Dates: start: 20140303, end: 20140303
  4. MGSO4 [Concomitant]
     Active Substance: MAGNESIUM SULFATE
     Indication: PREMEDICATION
     Route: 042
     Dates: start: 20131108
  5. MEGALIA [Concomitant]
     Indication: DECREASED APPETITE
     Dosage: 15 ML, UNK
     Route: 048
     Dates: start: 20140320, end: 20140325
  6. ONARTUZUMAB. [Suspect]
     Active Substance: ONARTUZUMAB
     Indication: GASTROOESOPHAGEAL CANCER
     Dosage: 570 MG, BIW
     Route: 042
     Dates: start: 20131108, end: 20131108
  7. FUROSEMIDUM [Concomitant]
     Active Substance: FUROSEMIDE
     Dosage: 1 DF, UNK
     Route: 048
     Dates: start: 20140326
  8. HYDROXYZINUM [Concomitant]
     Indication: INSOMNIA
     Dosage: 1 DF, UNK
     Route: 048
     Dates: start: 20140205
  9. 5?FLUOROURACIL [Suspect]
     Active Substance: FLUOROURACIL
     Indication: GASTROOESOPHAGEAL CANCER
     Dosage: 650 MG, BIW
     Route: 040
     Dates: start: 20131108, end: 20131108
  10. 5?FLUOROURACIL [Suspect]
     Active Substance: FLUOROURACIL
     Dosage: 3900 MG, BIW
     Route: 041
     Dates: start: 20131108, end: 20131108
  11. 5?FLUOROURACIL [Suspect]
     Active Substance: FLUOROURACIL
     Dosage: 3900 MG, BIW
     Route: 041
     Dates: start: 20140303, end: 20140303
  12. ONARTUZUMAB. [Suspect]
     Active Substance: ONARTUZUMAB
     Dosage: 570 MG, BIW
     Route: 042
     Dates: start: 20140212, end: 20140212
  13. NO?SPA FORTE [Concomitant]
     Indication: FLATULENCE
     Dosage: 80 MG, UNK
     Route: 048
     Dates: start: 20131003
  14. ONDANSETRON [Concomitant]
     Active Substance: ONDANSETRON
     Indication: PREMEDICATION
     Dosage: 16 MG, UNK
     Route: 042
     Dates: start: 20131108
  15. FENACTIL [Concomitant]
     Indication: HICCUPS
     Dosage: 20 GTT, UNK
     Route: 048
     Dates: start: 20140215
  16. PANTOPRAZOLE [Concomitant]
     Active Substance: PANTOPRAZOLE
     Dosage: 20 MG, UNK
     Route: 042
     Dates: start: 20140313
  17. TRANEXAMIC ACID. [Concomitant]
     Active Substance: TRANEXAMIC ACID
     Dosage: 2 DF, UNK
     Route: 042
     Dates: start: 20140313
  18. TRANEXAMIC ACID. [Concomitant]
     Active Substance: TRANEXAMIC ACID
     Dosage: 1 DF, UNK
     Route: 042
     Dates: start: 20140326
  19. FOLINIC ACID [Suspect]
     Active Substance: LEUCOVORIN
     Dosage: 650 MG, BIW
     Route: 042
     Dates: start: 20140212, end: 20140212
  20. FOLINIC ACID [Suspect]
     Active Substance: LEUCOVORIN
     Dosage: 650 MG, BIW
     Route: 042
     Dates: start: 20140303, end: 20140303
  21. 5?FLUOROURACIL [Suspect]
     Active Substance: FLUOROURACIL
     Dosage: 650 MG, BIW
     Route: 040
     Dates: start: 20140212, end: 20140212
  22. PYRALGINUM [Concomitant]
     Indication: ABDOMINAL PAIN
     Dosage: 1 %, UNK
     Route: 042
     Dates: start: 20140326, end: 20140328
  23. CYCLONAMINE [Concomitant]
     Active Substance: ETHAMSYLATE
     Dosage: 1 DF, UNK
     Route: 042
     Dates: start: 20140313
  24. OXALIPLATIN. [Suspect]
     Active Substance: OXALIPLATIN
     Dosage: 140 MG, BIW
     Route: 042
     Dates: start: 20140303, end: 20140303
  25. 5?FLUOROURACIL [Suspect]
     Active Substance: FLUOROURACIL
     Dosage: 3900 MG, BIW
     Route: 041
     Dates: start: 20140212, end: 20140212
  26. DEXAVEN [Concomitant]
     Active Substance: DEXAMETHASONE
     Indication: PREMEDICATION
     Dosage: 16 MG, UNK
     Route: 042
     Dates: start: 20131108
  27. FRAGMIN [Concomitant]
     Active Substance: DALTEPARIN SODIUM
     Indication: VENOUS THROMBOSIS
     Dosage: 10000 IU
     Route: 058
     Dates: start: 20140212
  28. CYCLONAMINE [Concomitant]
     Active Substance: ETHAMSYLATE
     Dosage: 1 DF, UNK
     Route: 048
     Dates: start: 20140320, end: 20140325
  29. 5?FLUOROURACIL [Suspect]
     Active Substance: FLUOROURACIL
     Dosage: 650 MG, BIW
     Route: 040
     Dates: start: 20140303, end: 20140303
  30. FUROSEMIDUM [Concomitant]
     Active Substance: FUROSEMIDE
     Indication: HYPERKALAEMIA
     Dosage: 1 DF, UNK
     Route: 048
     Dates: start: 20131212, end: 20140325
  31. TRAMAL [Concomitant]
     Active Substance: TRAMADOL
     Indication: BACK PAIN
     Dosage: 50 MG, UNK
     Route: 048
     Dates: start: 20140313
  32. TRANSTEC [Concomitant]
     Active Substance: BUPRENORPHINE
     Indication: ABDOMINAL PAIN
     Dosage: 35 OT, UNK
     Route: 062
     Dates: start: 20140327
  33. CYCLONAMINE [Concomitant]
     Active Substance: ETHAMSYLATE
     Dosage: 1 DF, UNK
     Route: 042
     Dates: start: 20140326
  34. OXALIPLATIN. [Suspect]
     Active Substance: OXALIPLATIN
     Indication: GASTROOESOPHAGEAL CANCER
     Dosage: 140 MG, BIW
     Route: 042
     Dates: start: 20131108, end: 20131108

REACTIONS (5)
  - Decreased appetite [Unknown]
  - Fatigue [Unknown]
  - Anaemia [Recovering/Resolving]
  - Tumour haemorrhage [Recovering/Resolving]
  - Haematemesis [Unknown]

NARRATIVE: CASE EVENT DATE: 20140212
